FAERS Safety Report 7944011-8 (Version None)
Quarter: 2011Q4

REPORT INFORMATION
  Report Type: 
  Country: None (occurrence: None)
  Receive Date: 20111128
  Receipt Date: 20111116
  Transmission Date: 20120403
  Serious: Yes (Other)
  Sender: FDA-Public Use
  Company Number: HU-ROCHE-1016282

PATIENT
  Age: 59 Year
  Sex: Male

DRUGS (3)
  1. MIDAZOLAM [Concomitant]
     Indication: SEDATIVE THERAPY
  2. ALTEPLASE [Suspect]
     Indication: INTRAVENTRICULAR HAEMORRHAGE
     Dosage: REPEATED DOSES (12H-INTERVAL) OF 1MG
  3. SUFENTANYL [Concomitant]
     Indication: SEDATIVE THERAPY

REACTIONS (2)
  - CNS VENTRICULITIS [None]
  - SEPSIS [None]
